FAERS Safety Report 12754492 (Version 2)
Quarter: 2017Q3

REPORT INFORMATION
  Report Type: Spontaneous
  Country: US (occurrence: US)
  Receive Date: 20160915
  Receipt Date: 20170914
  Transmission Date: 20171127
  Serious: No
  Sender: FDA-Public Use
  Company Number: US-ASTELLAS-2016US021530

PATIENT
  Age: 77 Year
  Sex: Male

DRUGS (1)
  1. XTANDI [Suspect]
     Active Substance: ENZALUTAMIDE
     Indication: PROSTATE CANCER
     Route: 048
     Dates: start: 20160316

REACTIONS (15)
  - Weight decreased [Unknown]
  - Claustrophobia [Unknown]
  - Rash [Recovered/Resolved]
  - Asthenia [Unknown]
  - Feeling jittery [Recovering/Resolving]
  - Chills [Unknown]
  - Panic attack [Unknown]
  - Nervousness [Unknown]
  - Anxiety [Recovering/Resolving]
  - Cold sweat [Recovered/Resolved]
  - Decreased appetite [Unknown]
  - Drug dose omission [Unknown]
  - Peripheral coldness [Unknown]
  - Hot flush [Unknown]
  - Fatigue [Unknown]

NARRATIVE: CASE EVENT DATE: 201605
